FAERS Safety Report 8997611 (Version 1)
Quarter: 2013Q1

REPORT INFORMATION
  Report Type: Spontaneous
  Country: US (occurrence: US)
  Receive Date: 20130104
  Receipt Date: 20130104
  Transmission Date: 20140127
  Serious: No
  Sender: FDA-Public Use
  Company Number: US-009507513-1301USA000587

PATIENT
  Age: 60 Year
  Sex: Female

DRUGS (1)
  1. AFRIN [Suspect]
     Indication: NASAL CONGESTION
     Route: 045

REACTIONS (1)
  - Drug ineffective [Unknown]
